FAERS Safety Report 9225116 (Version 1)
Quarter: 2013Q2

REPORT INFORMATION
  Report Type: Report from Study
  Country: US (occurrence: US)
  Receive Date: 20130411
  Receipt Date: 20130411
  Transmission Date: 20140414
  Serious: Yes (Hospitalization)
  Sender: FDA-Public Use
  Company Number: US-ABBOTT-13P-163-1068828-00

PATIENT
  Age: 53 Year
  Sex: Female

DRUGS (6)
  1. HUMIRA [Suspect]
     Indication: RHEUMATOID ARTHRITIS
     Dates: start: 201301, end: 20130320
  2. PLAQUENIL [Concomitant]
     Indication: RHEUMATOID ARTHRITIS
  3. ARAVA [Concomitant]
     Indication: RHEUMATOID ARTHRITIS
  4. NAPROSYN [Concomitant]
     Indication: RHEUMATOID ARTHRITIS
     Dosage: 250 MG DAILY
  5. ATENOLOL [Concomitant]
     Indication: HYPERTENSION
     Dosage: 25 MG DAILY
  6. SYNTHROID [Concomitant]
     Indication: BASEDOW^S DISEASE
     Dosage: 0.88 MG DAILY

REACTIONS (5)
  - Transient ischaemic attack [Not Recovered/Not Resolved]
  - Diplopia [Not Recovered/Not Resolved]
  - Eye disorder [Not Recovered/Not Resolved]
  - Eye swelling [Not Recovered/Not Resolved]
  - Swelling face [Not Recovered/Not Resolved]
